FAERS Safety Report 15803544 (Version 1)
Quarter: 2019Q1

REPORT INFORMATION
  Report Type: Spontaneous
  Country: US (occurrence: US)
  Receive Date: 20190109
  Receipt Date: 20190109
  Transmission Date: 20190417
  Serious: No
  Sender: FDA-Public Use
  Company Number: US-TEVA-2018-US-987731

PATIENT
  Sex: Female

DRUGS (1)
  1. VALSARTAN AND HYDROCHLOROTHIAZIDE [Suspect]
     Active Substance: HYDROCHLOROTHIAZIDE\VALSARTAN
     Indication: HYPERTENSION
     Dosage: FORM STRENGTH: VALSARTAN 320 AND HYDROCHLOROTHIAZIDE 12.5
     Route: 065
     Dates: start: 2006, end: 2018

REACTIONS (3)
  - Bladder cyst [Unknown]
  - Breast cyst [Unknown]
  - Recalled product administered [Unknown]

NARRATIVE: CASE EVENT DATE: 201811
